FAERS Safety Report 11808090 (Version 1)
Quarter: 2015Q4

REPORT INFORMATION
  Report Type: Spontaneous
  Country: DE (occurrence: DE)
  Receive Date: 20151207
  Receipt Date: 20151207
  Transmission Date: 20160305
  Serious: Yes (Other)
  Sender: FDA-Public Use
  Company Number: DE-TEVA-612595GER

PATIENT
  Age: 1 Day
  Sex: Female

DRUGS (3)
  1. PAROXETINE [Suspect]
     Active Substance: PAROXETINE\PAROXETINE HYDROCHLORIDE
     Indication: DEPRESSION
     Dosage: 40 MILLIGRAM DAILY;
     Route: 064
     Dates: start: 20140920, end: 20150621
  2. FOLSAEURE [Concomitant]
     Active Substance: FOLIC ACID
     Indication: PROPHYLAXIS OF NEURAL TUBE DEFECT
     Route: 064
     Dates: start: 20140920, end: 20150621
  3. CLOZAPINE. [Suspect]
     Active Substance: CLOZAPINE
     Indication: DEPRESSION
     Dosage: 400 MILLIGRAM DAILY;
     Route: 064
     Dates: start: 20140920, end: 20150621

REACTIONS (2)
  - Small for dates baby [Not Recovered/Not Resolved]
  - Foetal exposure during pregnancy [Unknown]

NARRATIVE: CASE EVENT DATE: 20150621
